FAERS Safety Report 8580554-4 (Version None)
Quarter: 2012Q3

REPORT INFORMATION
  Report Type: 
  Country: None (occurrence: None)
  Receive Date: 20120808
  Receipt Date: 20120202
  Transmission Date: 20120928
  Serious: Yes (Other)
  Sender: FDA-Public Use
  Company Number: CHPA2012US017392

PATIENT
  Age: 62 Year
  Sex: Male

DRUGS (2)
  1. EXCEDRIN (MIGRAINE) [Suspect]
     Indication: HEADACHE
     Dosage: 1-2 DF, PRN
     Route: 048
  2. ALTACE [Suspect]
     Dosage: UNK, UNK

REACTIONS (3)
  - HYPERTENSION [None]
  - UNDERDOSE [None]
  - PLATELET COUNT DECREASED [None]
